FAERS Safety Report 17280821 (Version 2)
Quarter: 2020Q1

REPORT INFORMATION
  Report Type: Spontaneous
  Country: US (occurrence: US)
  Receive Date: 20200117
  Receipt Date: 20200207
  Transmission Date: 20200409
  Serious: No
  Sender: FDA-Public Use
  Company Number: US-GLAXOSMITHKLINE-US2020008863

PATIENT

DRUGS (1)
  1. NICORETTE [Suspect]
     Active Substance: NICOTINE
     Indication: SMOKING CESSATION THERAPY
     Dosage: UNK, QD (TOOK 1 A DAY. TOOK IT FOR 4 DAYS)

REACTIONS (3)
  - Nausea [Unknown]
  - Malaise [Unknown]
  - Drug ineffective [Unknown]
